FAERS Safety Report 4534303-7 (Version None)
Quarter: 2004Q4

REPORT INFORMATION
  Report Type: 
  Country: None (occurrence: None)
  Receive Date: 20041222
  Receipt Date: 20040407
  Transmission Date: 20050328
  Serious: Yes (Hospitalization)
  Sender: FDA-Public Use
  Company Number: JP-NOVOPROD-236429

PATIENT
  Age: 19 Year
  Sex: Female
  Weight: 44 kg

DRUGS (10)
  1. PENFILL R CHU [Suspect]
     Indication: DIABETES MELLITUS INSULIN-DEPENDENT
     Dosage: 53 IU, QD
     Route: 058
     Dates: start: 20030421
  2. PENFILL R CHU [Suspect]
     Dates: start: 19970101
  3. PENFILL N CHU [Suspect]
     Indication: DIABETES MELLITUS INSULIN-DEPENDENT
     Dosage: 16 IU, QD
     Route: 058
     Dates: start: 20030421
  4. PENFILL N CHU [Suspect]
     Dates: start: 19970101
  5. THYRADIN [Concomitant]
     Dosage: .5 MG, QD
     Route: 048
     Dates: start: 20030421
  6. PREMARIN                                /NEZ/ [Concomitant]
     Route: 048
     Dates: start: 20030421
  7. NORLUTEN [Concomitant]
     Route: 048
     Dates: start: 20030421
  8. RENIVACE [Concomitant]
     Dosage: 5 MG, QD
     Route: 048
     Dates: start: 20030728
  9. SAWACILLIN [Concomitant]
     Dosage: 750 MG, QD
     Route: 048
     Dates: start: 20040229
  10. TAVEGYL                                 /AUS/ [Concomitant]
     Dosage: UNK, UNK
     Route: 048
     Dates: start: 20040209

REACTIONS (18)
  - ABDOMINAL PAIN UPPER [None]
  - ALANINE AMINOTRANSFERASE INCREASED [None]
  - ASPARTATE AMINOTRANSFERASE INCREASED [None]
  - BIOPSY LIVER ABNORMAL [None]
  - BLOOD BILIRUBIN INCREASED [None]
  - BLOOD GLUCOSE INCREASED [None]
  - BLOOD LACTATE DEHYDROGENASE INCREASED [None]
  - BODY TEMPERATURE INCREASED [None]
  - GAMMA-GLUTAMYLTRANSFERASE INCREASED [None]
  - GLYCOSYLATED HAEMOGLOBIN INCREASED [None]
  - JAUNDICE [None]
  - LIVER DISORDER [None]
  - OCULAR ICTERUS [None]
  - PROTEIN TOTAL DECREASED [None]
  - RASH [None]
  - SLUGGISHNESS [None]
  - STREPTOCOCCAL INFECTION [None]
  - THERAPEUTIC PRODUCT INEFFECTIVE [None]
